FAERS Safety Report 15331827 (Version 1)
Quarter: 2018Q3

REPORT INFORMATION
  Report Type: Spontaneous
  Country: NL (occurrence: NL)
  Receive Date: 20180829
  Receipt Date: 20180829
  Transmission Date: 20181010
  Serious: Yes (Other)
  Sender: FDA-Public Use
  Company Number: NL-ENDO PHARMACEUTICALS INC-2018-040899

PATIENT
  Age: 47 Year
  Sex: Female

DRUGS (4)
  1. AVEED [Suspect]
     Active Substance: TESTOSTERONE UNDECANOATE
     Indication: TRANSGENDER HORMONAL THERAPY
     Dosage: 1000 MG/10?14 WEEKS
     Route: 030
  2. TESTIM [Suspect]
     Active Substance: TESTOSTERONE
     Indication: TRANSGENDER HORMONAL THERAPY
     Dosage: 20?100 MG/DAY
     Route: 065
  3. TESTOSTERONE. [Suspect]
     Active Substance: TESTOSTERONE
     Indication: TRANSGENDER HORMONAL THERAPY
     Dosage: 250 MG/2?3 WEEKS
     Route: 030
  4. TESTOSTERONE. [Suspect]
     Active Substance: TESTOSTERONE
     Dosage: 40?60 MG, DAILY
     Route: 048

REACTIONS (3)
  - Pituitary tumour benign [Unknown]
  - Overdose [Unknown]
  - Off label use [Unknown]
